FAERS Safety Report 10034536 (Version 1)
Quarter: 2014Q1

REPORT INFORMATION
  Report Type: Spontaneous
  Country: US (occurrence: None)
  Receive Date: 20140321
  Receipt Date: 20140321
  Transmission Date: 20141002
  Serious: Yes (Other)
  Sender: FDA-Public Use
  Company Number: 2014HINOTH0246

PATIENT
  Age: 39 Year
  Sex: Female

DRUGS (3)
  1. ABACAVIR [Suspect]
     Indication: ANTIRETROVIRAL THERAPY
     Route: 064
  2. LAMIVUDINE [Suspect]
     Indication: ANTIRETROVIRAL THERAPY
     Route: 064
  3. KALETRA, ALUVIA (LOPINAVIR + RITONAVIR) [Concomitant]

REACTIONS (6)
  - Chronic obstructive pulmonary disease [None]
  - Hyperglycaemia [None]
  - Hypertension [None]
  - Exposure during pregnancy [None]
  - Superior vena cava syndrome [None]
  - Premature delivery [None]
